FAERS Safety Report 7780078-8 (Version None)
Quarter: 2011Q3

REPORT INFORMATION
  Report Type: 
  Country: None (occurrence: None)
  Receive Date: 20110927
  Receipt Date: 20110919
  Transmission Date: 20111222
  Serious: Yes (Hospitalization, Other)
  Sender: FDA-Public Use
  Company Number: JP-PFIZER INC-2011218614

PATIENT
  Age: 60 Year
  Sex: Male

DRUGS (15)
  1. MORPHINE SULFATE [Suspect]
     Indication: BACK PAIN
     Dosage: 3500 MG DAILY
     Route: 042
  2. KETAMINE HYDROCHLORIDE [Concomitant]
     Indication: PAIN IN EXTREMITY
  3. LIDOCAINE [Concomitant]
     Indication: CANCER PAIN
     Dosage: 700 MG/DAY
     Route: 042
  4. PREDNISOLONE [Concomitant]
     Dosage: 20 MG/DAY
  5. VALPROATE SODIUM [Concomitant]
     Dosage: 400 MG /DAY
  6. MORPHINE SULFATE [Suspect]
     Indication: PAIN IN EXTREMITY
     Dosage: 1750 MG DAILY
     Route: 042
  7. MORPHINE SULFATE [Suspect]
     Dosage: 875 MG DAILY
     Route: 042
  8. MELOXICAM [Concomitant]
     Dosage: 10 MG / DAY
     Route: 048
  9. MORPHINE SULFATE [Suspect]
     Dosage: 50 MG DAILY
     Route: 042
  10. KETAMINE HYDROCHLORIDE [Concomitant]
     Indication: CANCER PAIN
     Dosage: 300 MG / DAY
     Route: 042
  11. LIDOCAINE [Concomitant]
     Indication: BACK PAIN
  12. LIDOCAINE [Concomitant]
     Indication: PAIN IN EXTREMITY
  13. MIDAZOLAM [Concomitant]
     Indication: ANXIETY
     Dosage: 20 MG / DAY
     Route: 042
  14. KETAMINE HYDROCHLORIDE [Concomitant]
     Indication: BACK PAIN
  15. MORPHINE SULFATE [Suspect]
     Indication: CANCER PAIN
     Dosage: 7000 MG DAILY
     Route: 042

REACTIONS (6)
  - RESPIRATORY DEPRESSION [None]
  - SEDATION [None]
  - COGNITIVE DISORDER [None]
  - CONFUSIONAL STATE [None]
  - DELIRIUM [None]
  - INADEQUATE ANALGESIA [None]
